FAERS Safety Report 4711294-7 (Version None)
Quarter: 2005Q3

REPORT INFORMATION
  Report Type: 
  Country: None (occurrence: None)
  Receive Date: 20050711
  Receipt Date: 20050706
  Transmission Date: 20060218
  Serious: Yes (Other)
  Sender: FDA-Public Use
  Company Number: 005157

PATIENT
  Sex: Female

DRUGS (4)
  1. MEDROXYPROGESTERONE ACETATE [Suspect]
     Dosage: ORAL
     Route: 048
     Dates: start: 19930101, end: 19990101
  2. PROVERA [Suspect]
     Dosage: ORAL
     Route: 048
     Dates: start: 19930101, end: 19990101
  3. PREMARIN [Suspect]
     Dosage: ORAL
     Route: 048
     Dates: start: 19930101, end: 19990101
  4. PREMPRO [Suspect]
     Dosage: ORAL
     Route: 048
     Dates: start: 19990101, end: 20020101

REACTIONS (2)
  - BREAST CANCER FEMALE [None]
  - BREAST CANCER IN SITU [None]
